FAERS Safety Report 7519580-2 (Version None)
Quarter: 2011Q2

REPORT INFORMATION
  Report Type: 
  Country: None (occurrence: None)
  Receive Date: 20110602
  Receipt Date: 20110518
  Transmission Date: 20111010
  Serious: Yes (Hospitalization)
  Sender: FDA-Public Use
  Company Number: A0788548A

PATIENT
  Age: 63 Year
  Sex: Male
  Weight: 113.6 kg

DRUGS (18)
  1. AVANDAMET [Suspect]
     Route: 048
     Dates: start: 20040920, end: 20050101
  2. AVANDIA [Suspect]
     Dosage: 4MG TWICE PER DAY
     Route: 048
     Dates: start: 20031029, end: 20080801
  3. AMARYL [Concomitant]
  4. PROTONIX [Concomitant]
  5. ASPIRIN [Concomitant]
  6. AVELOX [Concomitant]
  7. HUMIBID [Concomitant]
  8. LEVAQUIN [Concomitant]
  9. LANTUS [Concomitant]
  10. ALLEGRA [Concomitant]
  11. FUROSEMIDE [Concomitant]
  12. ALBUTEROL SULFATE AUTOHALER [Concomitant]
  13. PREDNISONE [Concomitant]
  14. AVANDARYL [Suspect]
     Route: 048
     Dates: start: 20060619, end: 20070401
  15. LOTREL [Concomitant]
  16. SPIRIVA [Concomitant]
  17. ADVAIR DISKUS 100/50 [Concomitant]
  18. ZOCOR [Concomitant]

REACTIONS (5)
  - IMPAIRED GASTRIC EMPTYING [None]
  - CARDIOVASCULAR DISORDER [None]
  - RENAL FAILURE [None]
  - ANAEMIA [None]
  - CARDIAC FAILURE CONGESTIVE [None]
